FAERS Safety Report 5445280-9 (Version None)
Quarter: 2007Q3

REPORT INFORMATION
  Report Type: 
  Country: None (occurrence: None)
  Receive Date: 20070906
  Receipt Date: 20070730
  Transmission Date: 20080115
  Serious: No
  Sender: FDA-Public Use
  Company Number: A0646105A

PATIENT
  Age: 47 Year
  Sex: Female
  Weight: 107.7 kg

DRUGS (4)
  1. REQUIP [Suspect]
     Indication: RESTLESS LEGS SYNDROME
     Dosage: 2MG UNKNOWN
     Route: 048
     Dates: start: 20070315, end: 20070322
  2. HYDROCODONE BITARTRATE [Concomitant]
     Indication: BACK PAIN
  3. ZOCOR [Concomitant]
     Dosage: 20MG PER DAY
  4. CELEXA [Concomitant]
     Indication: DEPRESSION
     Dosage: 10MG PER DAY

REACTIONS (3)
  - DRUG INEFFECTIVE [None]
  - RESTLESS LEGS SYNDROME [None]
  - SLEEP DISORDER [None]
